FAERS Safety Report 25259757 (Version 1)
Quarter: 2025Q2

REPORT INFORMATION
  Report Type: Spontaneous
  Country: US (occurrence: None)
  Receive Date: 20250501
  Receipt Date: 20250501
  Transmission Date: 20250716
  Serious: Yes (Hospitalization, Other)
  Sender: FDA-CTU
  Company Number: None

PATIENT
  Sex: Female

DRUGS (1)
  1. IBRANCE [Suspect]
     Active Substance: PALBOCICLIB
     Indication: Chemotherapy
     Dosage: FREQUENCY : DAILY;?
     Route: 048
     Dates: start: 20250201, end: 20250309

REACTIONS (1)
  - Intestinal obstruction [None]
